FAERS Safety Report 24707798 (Version 1)
Quarter: 2024Q4

REPORT INFORMATION
  Report Type: Spontaneous
  Country: US (occurrence: US)
  Receive Date: 20241206
  Receipt Date: 20241206
  Transmission Date: 20250114
  Serious: No
  Sender: NOVO NORDISK
  Company Number: US-NOVOPROD-1237137

PATIENT
  Sex: Female

DRUGS (1)
  1. NOVOLIN 70/30 [Suspect]
     Active Substance: INSULIN HUMAN
     Indication: Product used for unknown indication
     Dosage: UNKNOWN
     Route: 058

REACTIONS (6)
  - Nausea [Unknown]
  - Lethargy [Unknown]
  - Fatigue [Unknown]
  - Feeling abnormal [Unknown]
  - Product physical consistency issue [Unknown]
  - Prescription drug used without a prescription [Unknown]
